FAERS Safety Report 15317913 (Version 1)
Quarter: 2018Q3

REPORT INFORMATION
  Report Type: Spontaneous
  Country: US (occurrence: US)
  Receive Date: 20180816
  Receipt Date: 20180816
  Transmission Date: 20181010
  Serious: Yes (Disabling)
  Sender: FDA-Public Use
  Company Number: None

PATIENT
  Age: 64 Year
  Sex: Female
  Weight: 64.35 kg

DRUGS (2)
  1. ANASTROZOLE 1 MG TABLET, 1 MG ASTRAZENECA [Suspect]
     Active Substance: ANASTROZOLE
     Indication: BREAST CANCER RECURRENT
     Dosage: ?          QUANTITY:30 TABLET(S);?
     Route: 048
     Dates: end: 20180812
  2. ESCITALOPRAM [Concomitant]
     Active Substance: ESCITALOPRAM OXALATE

REACTIONS (4)
  - Pain in extremity [None]
  - Myalgia [None]
  - Arthralgia [None]
  - Eye pain [None]

NARRATIVE: CASE EVENT DATE: 20180802
